FAERS Safety Report 12484181 (Version 2)
Quarter: 2016Q3

REPORT INFORMATION
  Report Type: Spontaneous
  Country: US (occurrence: US)
  Receive Date: 20160621
  Receipt Date: 20160705
  Transmission Date: 20161109
  Serious: Yes (Death)
  Sender: FDA-Public Use
  Company Number: US-CELGENEUS-USA-2016064276

PATIENT
  Age: 53 Year
  Sex: Male

DRUGS (1)
  1. ABRAXANE [Suspect]
     Active Substance: PACLITAXEL
     Indication: MALIGNANT NEOPLASM OF THYMUS
     Route: 050

REACTIONS (1)
  - Malignant neoplasm of thymus [Fatal]

NARRATIVE: CASE EVENT DATE: 20160610
